FAERS Safety Report 10621231 (Version 2)
Quarter: 2016Q2

REPORT INFORMATION
  Report Type: Report from Study
  Country: DE (occurrence: DE)
  Receive Date: 20141203
  Receipt Date: 20160602
  Transmission Date: 20160815
  Serious: Yes (Death, Hospitalization, Other)
  Sender: FDA-Public Use
  Company Number: DE-ROCHE-1500449

PATIENT
  Age: 51 Year
  Sex: Male
  Weight: 76 kg

DRUGS (11)
  1. RIBAVIRIN. [Suspect]
     Active Substance: RIBAVIRIN
     Route: 048
     Dates: start: 20140222
  2. ACTRAPHANE [Concomitant]
     Active Substance: INSULIN HUMAN
     Route: 058
  3. PANTOPRAZOL [Concomitant]
     Active Substance: PANTOPRAZOLE SODIUM
     Route: 065
     Dates: start: 20140217
  4. METFORMIN [Concomitant]
     Active Substance: METFORMIN HYDROCHLORIDE
     Route: 065
     Dates: start: 20140417
  5. PEG-INTERFERON ALFA 2A [Suspect]
     Active Substance: PEGINTERFERON ALFA-2A
     Indication: CHRONIC HEPATITIS C
     Route: 058
     Dates: start: 20140222, end: 20140516
  6. OMEPRAZOL RATIOPHARM [Concomitant]
     Route: 065
     Dates: start: 20140530
  7. SOVALDI [Suspect]
     Active Substance: SOFOSBUVIR
     Indication: CHRONIC HEPATITIS C
     Route: 048
     Dates: start: 20140222, end: 20140516
  8. RIBAVIRIN. [Suspect]
     Active Substance: RIBAVIRIN
     Indication: HEPATITIS C
     Route: 048
     Dates: start: 20140423, end: 20140516
  9. ATARAX [Concomitant]
     Active Substance: HYDROXYZINE\HYDROXYZINE HYDROCHLORIDE
     Route: 065
     Dates: start: 20140509
  10. ACTRAPID [Concomitant]
     Active Substance: INSULIN HUMAN
     Dosage: ACCORDING TO BLOOD SUGAR LEVEL
     Route: 065
  11. MUCOSOLVAN [Concomitant]
     Active Substance: AMBROXOL HYDROCHLORIDE
     Dosage: AS REQUIRED
     Route: 065

REACTIONS (16)
  - Insomnia [Recovered/Resolved]
  - Retinal detachment [Recovered/Resolved]
  - Burning sensation [Recovered/Resolved]
  - Hypoaesthesia oral [Recovered/Resolved]
  - Anaemia [Recovered/Resolved]
  - Deafness [Recovered/Resolved with Sequelae]
  - Fatigue [Recovered/Resolved]
  - Facial paresis [Recovered/Resolved]
  - Skin disorder [Recovered/Resolved]
  - Headache [Recovered/Resolved]
  - Arthralgia [Recovered/Resolved]
  - Ear disorder [Recovered/Resolved]
  - Gingival swelling [Recovered/Resolved]
  - Myalgia [Recovered/Resolved]
  - Myocardial infarction [Fatal]
  - Pruritus [Recovered/Resolved]

NARRATIVE: CASE EVENT DATE: 20140222
